FAERS Safety Report 5341895-7 (Version None)
Quarter: 2007Q2

REPORT INFORMATION
  Report Type: 
  Country: None (occurrence: None)
  Receive Date: 20070601
  Receipt Date: 20070522
  Transmission Date: 20071010
  Serious: Yes (Hospitalization)
  Sender: FDA-Public Use
  Company Number: FR-ELI_LILLY_AND_COMPANY-FR200703006190

PATIENT
  Age: 70 Year
  Sex: Female
  Weight: 67 kg

DRUGS (11)
  1. FORTEO [Suspect]
     Indication: OSTEOPOROSIS
     Dosage: 20 UG, DAILY (1/D)
     Route: 058
     Dates: start: 20060914, end: 20070324
  2. OXYGEN [Concomitant]
     Indication: CHRONIC RESPIRATORY FAILURE
     Dates: start: 20020101
  3. SOLUPRED [Concomitant]
     Dosage: 5 MG, 3/D
  4. FUROSEMIDE [Concomitant]
  5. DEPAKENE [Concomitant]
  6. ZOLOFT [Concomitant]
  7. OMEPRAZOLE [Concomitant]
  8. PULMICORT [Concomitant]
  9. COMBIVENT [Concomitant]
  10. DOLIPRANE [Concomitant]
  11. PRACTON [Concomitant]

REACTIONS (1)
  - ACUTE PULMONARY OEDEMA [None]
